FAERS Safety Report 13316809 (Version 1)
Quarter: 2017Q1

REPORT INFORMATION
  Report Type: Spontaneous
  Country: US (occurrence: US)
  Receive Date: 20170308
  Receipt Date: 20170308
  Transmission Date: 20170428
  Serious: No
  Sender: FDA-Public Use
  Company Number: US-ASTRAZENECA-2017SE22324

PATIENT
  Sex: Male
  Weight: 81.6 kg

DRUGS (1)
  1. SYMBICORT [Suspect]
     Active Substance: BUDESONIDE\FORMOTEROL FUMARATE DIHYDRATE
     Indication: UPPER RESPIRATORY TRACT INFECTION
     Dosage: DOSE:160 MCG / 4.5 MCG, 2 PUFFS, FREQUENCY:TWO TIMES A DAY
     Route: 055
     Dates: start: 20170216

REACTIONS (5)
  - Anger [Recovered/Resolved]
  - Throat irritation [Recovered/Resolved]
  - Irritability [Recovered/Resolved]
  - Aphonia [Recovered/Resolved]
  - Off label use [Unknown]
